FAERS Safety Report 24040146 (Version 2)
Quarter: 2024Q3

REPORT INFORMATION
  Report Type: Spontaneous
  Country: US (occurrence: US)
  Receive Date: 20240702
  Receipt Date: 20240711
  Transmission Date: 20241017
  Serious: No
  Sender: ROCHE
  Company Number: US-ROCHE-10000012953

PATIENT
  Sex: Male

DRUGS (3)
  1. XOLAIR PFS [Suspect]
     Active Substance: OMALIZUMAB
     Indication: Asthma
     Route: 058
     Dates: start: 202402
  2. XOLAIR PFS [Suspect]
     Active Substance: OMALIZUMAB
  3. SODIUM ACETATE [Concomitant]
     Active Substance: SODIUM ACETATE

REACTIONS (1)
  - Blood sodium decreased [Unknown]
